FAERS Safety Report 11554557 (Version 4)
Quarter: 2016Q1

REPORT INFORMATION
  Report Type: Spontaneous
  Country: JP (occurrence: JP)
  Receive Date: 20150925
  Receipt Date: 20160219
  Transmission Date: 20160525
  Serious: Yes (Hospitalization)
  Sender: FDA-Public Use
  Company Number: JP-BRISTOL-MYERS SQUIBB COMPANY-BMS-2015-063318

PATIENT
  Age: 65 Year
  Sex: Female

DRUGS (2)
  1. DAKLINZA [Suspect]
     Active Substance: DACLATASVIR
     Indication: CHRONIC HEPATITIS C
     Dosage: 60 MG, QD
     Route: 048
     Dates: start: 20150508, end: 20150914
  2. SUNVEPRA [Suspect]
     Active Substance: ASUNAPREVIR
     Indication: CHRONIC HEPATITIS C
     Dosage: 100 MG, BID
     Route: 048
     Dates: start: 20150508, end: 20150914

REACTIONS (6)
  - Hypoaesthesia [Recovered/Resolved]
  - Activities of daily living impaired [Unknown]
  - Tremor [Unknown]
  - Hyperammonaemia [Recovered/Resolved]
  - Dysarthria [Unknown]
  - Asthenia [Unknown]

NARRATIVE: CASE EVENT DATE: 20150914
